FAERS Safety Report 23810334 (Version 1)
Quarter: 2024Q2

REPORT INFORMATION
  Report Type: Spontaneous
  Country: US (occurrence: US)
  Receive Date: 20240502
  Receipt Date: 20240502
  Transmission Date: 20240716
  Serious: Yes (Other)
  Sender: FDA-Public Use
  Company Number: US-AMGEN-USASP2024084112

PATIENT
  Age: 46 Year
  Sex: Female

DRUGS (3)
  1. BEVACIZUMAB [Suspect]
     Active Substance: BEVACIZUMAB
     Indication: Ovarian clear cell carcinoma
     Dosage: UNK
     Route: 065
  2. PEMBROLIZUMAB [Suspect]
     Active Substance: PEMBROLIZUMAB
     Indication: Ovarian clear cell carcinoma
     Dosage: UNK
     Route: 065
  3. CYCLOPHOSPHAMIDE [Concomitant]
     Active Substance: CYCLOPHOSPHAMIDE
     Indication: Ovarian clear cell carcinoma
     Dosage: UNK
     Route: 065

REACTIONS (5)
  - Endocarditis noninfective [Recovering/Resolving]
  - Immune-mediated myocarditis [Unknown]
  - Ovarian clear cell carcinoma [Unknown]
  - Therapy partial responder [Unknown]
  - Off label use [Unknown]
